FAERS Safety Report 6552880-1 (Version None)
Quarter: 2010Q1

REPORT INFORMATION
  Report Type: 
  Country: None (occurrence: None)
  Receive Date: 20100122
  Receipt Date: 20100111
  Transmission Date: 20100710
  Serious: Yes (Hospitalization, Other)
  Sender: FDA-Public Use
  Company Number: 230012J10CAN

PATIENT
  Sex: Female

DRUGS (17)
  1. REBIF [Suspect]
     Indication: MULTIPLE SCLEROSIS
     Dosage: 44 MCG, 3 IN 1 WEEKS; 22 MCG, 3 IN 1 WEEKS; 44 MCG, 3 IN 1 WEEKS
  2. REBIF [Suspect]
     Indication: MULTIPLE SCLEROSIS
     Dosage: 44 MCG, 3 IN 1 WEEKS; 22 MCG, 3 IN 1 WEEKS; 44 MCG, 3 IN 1 WEEKS
     Dates: start: 19991118
  3. EVENING PRIMROSE OIL (OENOTHERA BIENNIS OIL) [Concomitant]
  4. VITAMIN E (TOCOPHEROL /00110501/) [Concomitant]
  5. CENTRUM MULTI-VITAMIN (CENTRUM /01536001/) [Concomitant]
  6. VITAMIN D [Concomitant]
  7. ASPIRIN [Concomitant]
  8. MAGNESIUM (MAGNSEIUM /01486801/) [Concomitant]
  9. LOVAZA [Concomitant]
  10. METFORMIN HCL [Concomitant]
  11. ZANLAFAXINE [VENLAFAXINE] (VENLAFAXINE) [Concomitant]
  12. RANITIDINE (RANITIDINE /00550801/) [Concomitant]
  13. AMITRIPTYLINE HCL [Concomitant]
  14. SIMVASTATIN [Concomitant]
  15. DIOVAN [Concomitant]
  16. PREDNISONE [Concomitant]
  17. BENEDRYL (BENADRYL /01563701/) [Concomitant]

REACTIONS (3)
  - HEPATIC ENZYME INCREASED [None]
  - LIVER DISORDER [None]
  - MULTIPLE SCLEROSIS RELAPSE [None]
